FAERS Safety Report 7432465-5 (Version None)
Quarter: 2011Q2

REPORT INFORMATION
  Report Type: 
  Country: None (occurrence: None)
  Receive Date: 20110414
  Receipt Date: 20110405
  Transmission Date: 20111010
  Serious: Yes (Hospitalization)
  Sender: FDA-Public Use
  Company Number: ABR_00033_2011

PATIENT
  Age: 90 Year
  Sex: Male
  Weight: 75 kg

DRUGS (3)
  1. NITROGLYCERIN [Suspect]
     Indication: CHEST PAIN
     Dosage: 0.4 MG MILLIGRAM(S) 1/1 AS NECESSARY, SUBLINGUAL
     Route: 060
  2. NITROGLYCERIN [Suspect]
     Indication: HYPERTENSION
     Dosage: 0.4 MG MILLIGRAM(S) 1/1 AS NECESSARY, SUBLINGUAL
     Route: 060
  3. BISOPROLOL FUMARATE [Suspect]
     Indication: HYPERTENSION
     Dosage: 3.75 MG MILLIGRAM(S) 2/1 DAY, ORAL
     Route: 048

REACTIONS (5)
  - DIZZINESS [None]
  - NAUSEA [None]
  - MALAISE [None]
  - HYPOTENSION [None]
  - URINARY INCONTINENCE [None]
